FAERS Safety Report 9490795 (Version 5)
Quarter: 2014Q2

REPORT INFORMATION
  Report Type: Spontaneous
  Country: US (occurrence: None)
  Receive Date: 20130826
  Receipt Date: 20140519
  Transmission Date: 20141212
  Serious: Yes (Life-Threatening, Hospitalization, Other)
  Sender: FDA-Public Use
  Company Number: ADR-2013-01460

PATIENT
  Age: 54 Year
  Sex: Female

DRUGS (16)
  1. BACLOFEN [Suspect]
     Indication: MUSCLE SPASTICITY
  2. MORPHINE [Suspect]
  3. AMBIEN [Concomitant]
  4. AMITRIPTYLINE [Concomitant]
  5. GABAPENTIN [Concomitant]
  6. METFORMIN [Concomitant]
  7. ACARBOSE [Concomitant]
  8. TRICOR [Concomitant]
  9. SENOKOT [Concomitant]
  10. BUPROPION [Concomitant]
  11. SYNTHROID [Concomitant]
  12. LANSOPRAZOLE [Concomitant]
  13. DOCUSATE [Concomitant]
  14. ZOLPIDEM [Concomitant]
  15. VERAMYST [Concomitant]
  16. BENAZEPRIL [Concomitant]

REACTIONS (30)
  - Fatigue [None]
  - Fall [None]
  - Loss of consciousness [None]
  - Lethargy [None]
  - Unresponsive to stimuli [None]
  - Overdose [None]
  - Eye movement disorder [None]
  - Nervous system disorder [None]
  - Mental status changes [None]
  - Dyskinesia [None]
  - Depressed level of consciousness [None]
  - Insomnia [None]
  - Fatigue [None]
  - Metabolic disorder [None]
  - Encephalopathy [None]
  - Resuscitation [None]
  - Dizziness [None]
  - Cognitive disorder [None]
  - Somnolence [None]
  - Incorrect dose administered by device [None]
  - Dyspnoea [None]
  - Syncope [None]
  - Respiratory depression [None]
  - Convulsion [None]
  - Treatment noncompliance [None]
  - Device infusion issue [None]
  - Implant site reaction [None]
  - Muscle spasticity [None]
  - Memory impairment [None]
  - Cognitive disorder [None]
